FAERS Safety Report 5005071-X (Version None)
Quarter: 2006Q2

REPORT INFORMATION
  Report Type: 
  Country: None (occurrence: None)
  Receive Date: 20060516
  Receipt Date: 20060516
  Transmission Date: 20061013
  Serious: Yes (Hospitalization)
  Sender: FDA-Public Use
  Company Number: None

PATIENT
  Sex: Male
  Weight: 113.4 kg

DRUGS (2)
  1. BENZOCAINE 20% SPRAY (HURRICAINE SPRAY) [Suspect]
     Indication: ECHOCARDIOGRAM
     Dosage: X ONE  TOPICAL
     Route: 061
     Dates: start: 20060420
  2. LIDOCAINE VISCOUS [Suspect]
     Dosage: X ONE  TOPICAL
     Route: 061
     Dates: start: 20060420

REACTIONS (5)
  - BLOOD METHAEMOGLOBIN PRESENT [None]
  - OXYGEN SATURATION DECREASED [None]
  - PO2 INCREASED [None]
  - POST PROCEDURAL COMPLICATION [None]
  - PROCEDURAL COMPLICATION [None]
